FAERS Safety Report 9490574 (Version 2)
Quarter: 2013Q3

REPORT INFORMATION
  Report Type: Spontaneous
  Country: US (occurrence: US)
  Receive Date: 20130830
  Receipt Date: 20130830
  Transmission Date: 20140515
  Serious: Yes (Other)
  Sender: FDA-Public Use
  Company Number: US-GENZYME-CERZ-1002572

PATIENT
  Age: 20 Year
  Sex: Female

DRUGS (9)
  1. CEREZYME [Suspect]
     Indication: GAUCHER^S DISEASE
     Dosage: 60 U/KG, Q2W
     Route: 042
     Dates: start: 201105
  2. CEREZYME [Suspect]
     Dosage: UNK (APPROXIMATELY 13 YEARS AGO)
     Route: 042
     Dates: start: 1999
  3. ZAVESCA [Concomitant]
     Indication: PRODUCT USED FOR UNKNOWN INDICATION
     Dosage: UNK
     Route: 065
  4. V-PRIV [Concomitant]
     Indication: GAUCHER^S DISEASE
     Dosage: UNK
     Route: 065
     Dates: end: 201105
  5. VICODIN [Concomitant]
     Indication: SPINAL PAIN
     Dosage: UNK
     Route: 065
  6. TRAMADOL [Concomitant]
     Indication: SPINAL PAIN
     Dosage: UNK
     Route: 065
  7. GABAPENTIN [Concomitant]
     Indication: SPINAL PAIN
     Dosage: UNK
     Route: 065
  8. BUTRAN [Concomitant]
     Indication: SPINAL PAIN
     Dosage: UNK
     Route: 061
  9. BIRTH CONTROL [Concomitant]
     Indication: CONTRACEPTION
     Dosage: UNK
     Route: 065

REACTIONS (4)
  - Weight increased [Recovered/Resolved]
  - Hunger [Not Recovered/Not Resolved]
  - Depression [Not Recovered/Not Resolved]
  - Spinal pain [Not Recovered/Not Resolved]
